FAERS Safety Report 14930683 (Version 2)
Quarter: 2018Q3

REPORT INFORMATION
  Report Type: Report from Study
  Country: US (occurrence: US)
  Receive Date: 20180523
  Receipt Date: 20180706
  Transmission Date: 20181010
  Serious: Yes (Hospitalization, Other)
  Sender: FDA-Public Use
  Company Number: US-BIOGEN-2018BI00579358

PATIENT
  Age: 65 Year
  Sex: Female

DRUGS (1)
  1. TECFIDERA [Suspect]
     Active Substance: DIMETHYL FUMARATE
     Indication: MULTIPLE SCLEROSIS
     Route: 048
     Dates: start: 20170513

REACTIONS (7)
  - Ovarian cancer [Not Recovered/Not Resolved]
  - Myasthenia gravis [Unknown]
  - Thrombosis [Unknown]
  - Seizure [Unknown]
  - Hemiparesis [Unknown]
  - Pulmonary thrombosis [Unknown]
  - Amnesia [Unknown]

NARRATIVE: CASE EVENT DATE: 201805
